FAERS Safety Report 19748133 (Version 2)
Quarter: 2025Q1

REPORT INFORMATION
  Report Type: Spontaneous
  Country: DE (occurrence: DE)
  Receive Date: 20210826
  Receipt Date: 20250326
  Transmission Date: 20250409
  Serious: Yes (Death, Life-Threatening, Hospitalization, Other)
  Sender: AUROBINDO
  Company Number: DE-BFARM-21007843

PATIENT
  Age: 6 Month
  Weight: 7.6 kg

DRUGS (2)
  1. MIDAZOLAM [Suspect]
     Active Substance: MIDAZOLAM
     Indication: Product used for unknown indication
     Route: 065
  2. LIDOCAINE [Suspect]
     Active Substance: LIDOCAINE
     Indication: Febrile convulsion
     Route: 050
     Dates: start: 2021

REACTIONS (3)
  - Cardiac arrest [Fatal]
  - Overdose [Fatal]
  - Off label use [Unknown]

NARRATIVE: CASE EVENT DATE: 20210101
